FAERS Safety Report 4769089-4 (Version None)
Quarter: 2005Q3

REPORT INFORMATION
  Report Type: 
  Country: None (occurrence: None)
  Receive Date: 20050912
  Receipt Date: 20050611
  Transmission Date: 20060218
  Serious: Yes (Hospitalization)
  Sender: FDA-Public Use
  Company Number: 2005-BP-09917BP

PATIENT
  Age: 25 Year
  Sex: Male

DRUGS (4)
  1. VIRAMUNE [Suspect]
  2. BACTRIM [Concomitant]
  3. AZT [Concomitant]
  4. 3 TC (LAMIVUDINE) [Concomitant]

REACTIONS (1)
  - STEVENS-JOHNSON SYNDROME [None]
